FAERS Safety Report 5035190-3 (Version None)
Quarter: 2006Q2

REPORT INFORMATION
  Report Type: 
  Country: None (occurrence: None)
  Receive Date: 20060522
  Receipt Date: 20060117
  Transmission Date: 20061013
  Serious: Yes (Other)
  Sender: FDA-Public Use
  Company Number: PHEH2006US00756

PATIENT
  Age: 42 Year
  Sex: Female

DRUGS (6)
  1. TEGRETOL-XR [Suspect]
     Indication: CONVULSION
     Dosage: 300 MG,BID,ORAL
     Route: 048
     Dates: start: 20050601
  2. AMBIEN [Suspect]
     Dosage: 20 MG/DAY,ORAL
     Route: 048
  3. LAMICTAL [Concomitant]
  4. TOPAMAX [Concomitant]
  5. FLUOXETINE [Concomitant]
  6. SEROQUEL [Concomitant]

REACTIONS (1)
  - BLOOD SODIUM DECREASED [None]
